FAERS Safety Report 21310061 (Version 1)
Quarter: 2022Q3

REPORT INFORMATION
  Report Type: Spontaneous
  Country: PT (occurrence: PT)
  Receive Date: 20220909
  Receipt Date: 20220909
  Transmission Date: 20221027
  Serious: Yes (Other)
  Sender: FDA-Public Use
  Company Number: PT-SUN PHARMACEUTICAL INDUSTRIES LTD-2022R1-353993

PATIENT
  Age: 22 Year
  Sex: Male

DRUGS (1)
  1. RISPERIDONE [Suspect]
     Active Substance: RISPERIDONE
     Indication: Psychotic symptom
     Dosage: 3 MG
     Route: 065

REACTIONS (6)
  - Somnolence [Unknown]
  - Bradykinesia [Unknown]
  - Tremor [Unknown]
  - Hypotension [Unknown]
  - Drug withdrawal syndrome [Unknown]
  - Condition aggravated [Unknown]
